FAERS Safety Report 7067771-X (Version None)
Quarter: 2010Q4

REPORT INFORMATION
  Report Type: 
  Country: None (occurrence: None)
  Receive Date: 20101028
  Receipt Date: 20100325
  Transmission Date: 20110411
  Serious: No
  Sender: FDA-Public Use
  Company Number: A0844321A

PATIENT
  Age: 47 Year
  Sex: Female
  Weight: 71.8 kg

DRUGS (5)
  1. SEREVENT [Suspect]
     Indication: ASTHMA
     Dosage: 1PUFF TWICE PER DAY
     Route: 055
     Dates: start: 20100130, end: 20100131
  2. PULMICORT [Suspect]
     Indication: PRODUCT USED FOR UNKNOWN INDICATION
  3. PEPCID [Concomitant]
  4. IBUPROFEN [Concomitant]
  5. PROAIR HFA [Concomitant]

REACTIONS (7)
  - CONDITION AGGRAVATED [None]
  - DIZZINESS [None]
  - DRUG INEFFECTIVE [None]
  - DYSPNOEA [None]
  - PALPITATIONS [None]
  - RESPIRATORY TRACT IRRITATION [None]
  - SENSORY DISTURBANCE [None]
